FAERS Safety Report 9534910 (Version 8)
Quarter: 2014Q1

REPORT INFORMATION
  Report Type: Spontaneous
  Country: US (occurrence: US)
  Receive Date: 20130918
  Receipt Date: 20140214
  Transmission Date: 20141002
  Serious: Yes (Death, Other)
  Sender: FDA-Public Use
  Company Number: US-PFIZER INC-2013264853

PATIENT
  Age: 60 Year
  Sex: Male
  Weight: 63.49 kg

DRUGS (18)
  1. INLYTA [Suspect]
     Indication: METASTATIC RENAL CELL CARCINOMA
     Dosage: 5 MG, 2X/DAY (5 MG EVERY 12 HRS)FOR 2 WEEKS
     Route: 048
     Dates: start: 20130115
  2. INLYTA [Suspect]
     Dosage: 7 MG, 2X/DAY (7 MG EVERY 12 HRS) FOR 2 WEEKS
     Route: 048
     Dates: start: 20130212
  3. INLYTA [Suspect]
     Dosage: 10 MG, 2X/DAY  (10 MG EVERY 12 HRS)
     Route: 048
     Dates: start: 20130222
  4. ASPIRIN [Concomitant]
     Dosage: 81 MG, DAILY
     Route: 048
  5. CITALOPRAM [Concomitant]
     Dosage: 40 MG, DAILY
     Route: 048
  6. FOLIC ACID [Concomitant]
     Dosage: 1 MG, DAILY
     Route: 048
  7. LAMOTRIGINE [Concomitant]
     Dosage: 200 MG, 2X/DAY
     Route: 048
  8. MEGACE [Concomitant]
     Dosage: 400 MG/10ML (40 MG/ML)
     Route: 048
  9. METOPROLOL [Concomitant]
     Dosage: UNK
  10. MIRTAZAPINE [Concomitant]
     Dosage: 15 MG, (15 MG PO QHS )
     Route: 048
  11. ONDANSETRON [Concomitant]
     Dosage: 8 MG, DISINTEGRATING TABLET
  12. RAMIPRIL [Concomitant]
     Dosage: 5 MG, DAILY
     Route: 048
  13. REGLAN [Concomitant]
     Dosage: 10 MG, UNK
  14. SIMVASTATIN [Concomitant]
     Dosage: 40 MG, (40 MG PO QHS )
     Route: 048
  15. TAMSULOSIN [Concomitant]
     Dosage: 0.4 MG, DAILY
  16. PREDNISONE [Concomitant]
     Dosage: 20 MG, UNK
  17. ZOFRAN [Concomitant]
     Indication: NAUSEA
     Dosage: 4 MG, AS NEEDED (4 MG 2 ML. IV PUSH Q6H PRN)
     Route: 042
  18. ZOFRAN [Concomitant]
     Indication: VOMITING
     Dosage: DISINTEGRATING TABLETS (UNKNOWN) AT 8 MG, ALSO REPORTED AS 16 MG
     Route: 048
     Dates: start: 201308

REACTIONS (7)
  - Death [Fatal]
  - Rectal haemorrhage [Unknown]
  - Decreased appetite [Unknown]
  - Diarrhoea [Unknown]
  - Weight decreased [Unknown]
  - Nausea [Unknown]
  - Emphysema [Unknown]
